FAERS Safety Report 9194348 (Version 1)
Quarter: 2013Q1

REPORT INFORMATION
  Report Type: Spontaneous
  Country: US (occurrence: US)
  Receive Date: 20130327
  Receipt Date: 20130327
  Transmission Date: 20140127
  Serious: Yes (Other)
  Sender: FDA-Public Use
  Company Number: US-RB-051602-13

PATIENT
  Sex: Male
  Weight: 74 kg

DRUGS (1)
  1. MUCINEX DM MAXIMUM STRENGTH [Suspect]
     Indication: EUPHORIC MOOD
     Dosage: CHEWED TOTAL 28 TABLETS IN 12 HOUR PERIOD ON 16/MAR/2013.
     Route: 048
     Dates: start: 20130316

REACTIONS (3)
  - Drug abuse [Not Recovered/Not Resolved]
  - Wrong technique in drug usage process [Not Recovered/Not Resolved]
  - Dysuria [Not Recovered/Not Resolved]
